FAERS Safety Report 6535025-3 (Version None)
Quarter: 2010Q1

REPORT INFORMATION
  Report Type: 
  Country: None (occurrence: None)
  Receive Date: 20100111
  Receipt Date: 20100111
  Transmission Date: 20100710
  Serious: Yes (Hospitalization, Other)
  Sender: FDA-Public Use
  Company Number: None

PATIENT
  Age: 52 Year
  Sex: Female

DRUGS (1)
  1. PROMETHAZINE [Suspect]
     Dosage: 12.5 MG IV Q6H PRN
     Route: 042
     Dates: start: 20090528, end: 20090602

REACTIONS (3)
  - APNOEA [None]
  - GRAND MAL CONVULSION [None]
  - POSTURING [None]
